FAERS Safety Report 23234673 (Version 3)
Quarter: 2023Q4

REPORT INFORMATION
  Report Type: Spontaneous
  Country: BR (occurrence: BR)
  Receive Date: 20231128
  Receipt Date: 20231213
  Transmission Date: 20240109
  Serious: Yes (Hospitalization)
  Sender: FDA-Public Use
  Company Number: BR-002147023-NVSC2023BR250172

PATIENT

DRUGS (3)
  1. RUXOLITINIB [Suspect]
     Active Substance: RUXOLITINIB
     Indication: Myelofibrosis
     Dosage: 1 DOSAGE FORM, Q12H
     Route: 048
     Dates: end: 202304
  2. RUXOLITINIB [Suspect]
     Active Substance: RUXOLITINIB
     Dosage: 5 MG (1 TABLET), Q12H
     Route: 065
     Dates: start: 202307
  3. RUXOLITINIB [Suspect]
     Active Substance: RUXOLITINIB
     Dosage: 1 DOSAGE FORM, Q12H
     Route: 048
     Dates: start: 20231127

REACTIONS (9)
  - Anaemia [Not Recovered/Not Resolved]
  - Varices oesophageal [Recovering/Resolving]
  - Aortic valve sclerosis [Recovering/Resolving]
  - Amnesia [Recovered/Resolved]
  - Bacterial infection [Recovered/Resolved]
  - Thrombosis [Recovered/Resolved]
  - Weight decreased [Recovering/Resolving]
  - Condition aggravated [Recovered/Resolved]
  - Myelofibrosis [Recovered/Resolved]

NARRATIVE: CASE EVENT DATE: 20230701
